FAERS Safety Report 7301340-9 (Version None)
Quarter: 2011Q1

REPORT INFORMATION
  Report Type: 
  Country: None (occurrence: None)
  Receive Date: 20110113
  Receipt Date: 20101104
  Transmission Date: 20110831
  Serious: No
  Sender: FDA-Public Use
  Company Number: US-001377

PATIENT
  Sex: Female

DRUGS (1)
  1. KUVAN [Suspect]
     Indication: PHENYLKETONURIA
     Dosage: (1100 MG QD ORAL)
     Route: 048
     Dates: start: 20080401

REACTIONS (5)
  - VERTIGO [None]
  - VIRAL INFECTION [None]
  - NAUSEA [None]
  - TREMOR [None]
  - ANOSMIA [None]
